FAERS Safety Report 4833382-7 (Version None)
Quarter: 2005Q4

REPORT INFORMATION
  Report Type: 
  Country: None (occurrence: None)
  Receive Date: 20051117
  Receipt Date: 20051104
  Transmission Date: 20060501
  Serious: Yes (Hospitalization)
  Sender: FDA-Public Use
  Company Number: HQWYE980212OCT05

PATIENT
  Age: 72 Year
  Sex: Female

DRUGS (3)
  1. AMIODARONE HCL [Suspect]
     Indication: ATRIAL FIBRILLATION
     Dosage: 200 MG 1X PER 1 DAY
  2. DIGOXIN [Concomitant]
  3. ASPIRIN [Concomitant]

REACTIONS (19)
  - AORTIC ARTERIOSCLEROSIS [None]
  - BLOOD PH INCREASED [None]
  - CARDIOMEGALY [None]
  - CHOLELITHIASIS [None]
  - DEHYDRATION [None]
  - DILATATION ATRIAL [None]
  - DILATATION VENTRICULAR [None]
  - GALLBLADDER ENLARGEMENT [None]
  - HEART RATE INCREASED [None]
  - HEPATIC ENCEPHALOPATHY [None]
  - INTERSTITIAL LUNG DISEASE [None]
  - KLEBSIELLA SEPSIS [None]
  - MITRAL VALVE CALCIFICATION [None]
  - PLATELET COUNT DECREASED [None]
  - PO2 DECREASED [None]
  - PULMONARY TOXICITY [None]
  - RENAL FUNCTION TEST ABNORMAL [None]
  - SPLENOMEGALY [None]
  - TRICUSPID VALVE INCOMPETENCE [None]
